FAERS Safety Report 6385775-7 (Version None)
Quarter: 2009Q4

REPORT INFORMATION
  Report Type: 
  Country: None (occurrence: None)
  Receive Date: 20091002
  Receipt Date: 20080929
  Transmission Date: 20100525
  Serious: No
  Sender: FDA-Public Use
  Company Number: US-ASTRAZENECA-2008UW20696

PATIENT
  Age: 67 Year
  Sex: Female

DRUGS (1)
  1. ARIMIDEX [Suspect]
     Indication: BREAST CANCER
     Route: 048

REACTIONS (9)
  - COUGH [None]
  - DEPRESSION [None]
  - DIABETES MELLITUS [None]
  - FEELING ABNORMAL [None]
  - GAIT DISTURBANCE [None]
  - IRRITABILITY [None]
  - MOOD ALTERED [None]
  - PULMONARY OEDEMA [None]
  - WHIPLASH INJURY [None]
